FAERS Safety Report 8344037-9 (Version None)
Quarter: 2012Q2

REPORT INFORMATION
  Report Type: 
  Country: None (occurrence: None)
  Receive Date: 20120508
  Receipt Date: 20120428
  Transmission Date: 20120825
  Serious: Yes (Hospitalization, Other)
  Sender: FDA-Public Use
  Company Number: US-MILLENNIUM PHARMACEUTICALS, INC.-2012-02951

PATIENT
  Age: 13 Year
  Sex: Male
  Weight: 32.7 kg

DRUGS (8)
  1. CYTARABINE [Suspect]
     Dosage: 100 MG/M2, CYCLIC
     Route: 042
     Dates: start: 20120102
  2. CYTARABINE [Suspect]
     Dosage: 1000 MG/M2, CYCLIC
     Route: 042
     Dates: end: 20120415
  3. DAUNORUBICIN HYDROCHLORIDE [Suspect]
     Indication: ACUTE MYELOID LEUKAEMIA
     Dosage: 50 MG/M2, CYCLIC
     Route: 042
     Dates: start: 20120102, end: 20120210
  4. ETOPOSIDE [Suspect]
     Dosage: 150 MG/M2, CYCLIC
     Route: 042
  5. MITOXANTRONE HYDROCHLORIDE [Suspect]
     Indication: ACUTE MYELOID LEUKAEMIA
     Dosage: 12 MG/M2, CYCLIC
     Route: 042
     Dates: start: 20120411, end: 20120415
  6. VELCADE [Suspect]
     Indication: ACUTE MYELOID LEUKAEMIA
     Dosage: 1.3 MG/M2, CYCLIC
     Route: 040
     Dates: start: 20120102, end: 20120418
  7. ETOPOSIDE [Suspect]
     Indication: ACUTE MYELOID LEUKAEMIA
     Dosage: 100 MG/M2, CYCLIC
     Route: 042
     Dates: start: 20120102, end: 20120313
  8. CYTARABINE [Suspect]
     Indication: ACUTE MYELOID LEUKAEMIA
     Dosage: UNK MG/M2, CYCLIC
     Route: 037
     Dates: start: 20120102

REACTIONS (8)
  - PAIN [None]
  - DECREASED APPETITE [None]
  - PYREXIA [None]
  - HYPOTENSION [None]
  - DEVICE RELATED INFECTION [None]
  - ENTEROCOLITIS INFECTIOUS [None]
  - SINUS TACHYCARDIA [None]
  - DIARRHOEA [None]
